FAERS Safety Report 17367308 (Version 2)
Quarter: 2020Q1

REPORT INFORMATION
  Report Type: Spontaneous
  Country: US (occurrence: US)
  Receive Date: 20200204
  Receipt Date: 20200302
  Transmission Date: 20200409
  Serious: No
  Sender: FDA-Public Use
  Company Number: US-STRONGBRIDGE BIOPHARMA-2020-STR-000031

PATIENT
  Age: 47 Year
  Sex: Male

DRUGS (1)
  1. KEVEYIS [Suspect]
     Active Substance: DICHLORPHENAMIDE
     Indication: FAMILIAL PERIODIC PARALYSIS
     Dosage: 25 MG, QD
     Route: 048
     Dates: end: 20200122

REACTIONS (2)
  - Influenza [Recovered/Resolved]
  - Hyperaesthesia [Recovered/Resolved]

NARRATIVE: CASE EVENT DATE: 20200120
